FAERS Safety Report 7418550-2 (Version None)
Quarter: 2011Q2

REPORT INFORMATION
  Report Type: 
  Country: None (occurrence: None)
  Receive Date: 20110415
  Receipt Date: 20110408
  Transmission Date: 20111010
  Serious: Yes (Other)
  Sender: FDA-Public Use
  Company Number: PHHY2011JP09654

PATIENT
  Sex: Male

DRUGS (2)
  1. NEORAL [Suspect]
     Indication: INTERSTITIAL LUNG DISEASE
     Dosage: 400 MG, UNK
     Route: 048
  2. PREDONINE [Concomitant]
     Dosage: 10 MG,
     Route: 048

REACTIONS (2)
  - EYE INFECTION FUNGAL [None]
  - VITREOUS OPACITIES [None]
